FAERS Safety Report 4928422-0 (Version None)
Quarter: 2006Q1

REPORT INFORMATION
  Report Type: 
  Country: None (occurrence: None)
  Receive Date: 20060228
  Receipt Date: 20050921
  Transmission Date: 20060701
  Serious: Yes (Other)
  Sender: FDA-Public Use
  Company Number: US-MERCK-0509USA03097

PATIENT
  Age: 50 Year
  Sex: Female
  Weight: 68 kg

DRUGS (4)
  1. VIOXX [Suspect]
     Indication: ARTHRITIS
     Route: 048
     Dates: start: 19990831, end: 20030508
  2. PREVACID [Concomitant]
     Route: 065
  3. ISOSORBIDE [Concomitant]
     Route: 065
  4. METOCLOPRAMIDE [Concomitant]
     Route: 065

REACTIONS (5)
  - ANXIETY [None]
  - CHEST PAIN [None]
  - DEPRESSION [None]
  - MYOCARDIAL INFARCTION [None]
  - STRESS [None]
